FAERS Safety Report 14566101 (Version 16)
Quarter: 2020Q4

REPORT INFORMATION
  Report Type: Spontaneous
  Country: US (occurrence: US)
  Receive Date: 20180223
  Receipt Date: 20201223
  Transmission Date: 20210113
  Serious: Yes (Other)
  Sender: FDA-Public Use
  Company Number: US-PFIZER INC-2016452046

PATIENT
  Age: 74 Year
  Sex: Female
  Weight: 103 kg

DRUGS (2)
  1. XELJANZ XR [Suspect]
     Active Substance: TOFACITINIB CITRATE
     Dosage: 11 MG, 1X/DAY (ONCE A DAY (IN THE EVENING))
     Route: 048
  2. XELJANZ XR [Suspect]
     Active Substance: TOFACITINIB CITRATE
     Indication: RHEUMATOID ARTHRITIS
     Dosage: 11 MG, 1X/DAY
     Route: 048
     Dates: start: 201607, end: 20160923

REACTIONS (8)
  - Influenza [Unknown]
  - Malaise [Unknown]
  - Back pain [Unknown]
  - Gait disturbance [Unknown]
  - Foot fracture [Recovering/Resolving]
  - Fatigue [Unknown]
  - Seasonal allergy [Unknown]
  - Arthralgia [Unknown]

NARRATIVE: CASE EVENT DATE: 20180327
